FAERS Safety Report 4266355-6 (Version None)
Quarter: 2004Q1

REPORT INFORMATION
  Report Type: 
  Country: None (occurrence: None)
  Receive Date: 20040106
  Receipt Date: 20031222
  Transmission Date: 20041129
  Serious: No
  Sender: FDA-Public Use
  Company Number: 02100-JPN-03-0293

PATIENT
  Age: 78 Year

DRUGS (2)
  1. CILOSTAZOL [Suspect]
     Dosage: 200 MG
     Route: 048
  2. ASPIRIN [Suspect]
     Route: 048

REACTIONS (1)
  - HAEMORRHAGE INTRACRANIAL [None]
